FAERS Safety Report 24113115 (Version 3)
Quarter: 2024Q3

REPORT INFORMATION
  Report Type: Report from Study
  Country: US (occurrence: US)
  Receive Date: 20240719
  Receipt Date: 20240812
  Transmission Date: 20241016
  Serious: No
  Sender: ALEXION PHARMACEUTICALS
  Company Number: US-AstraZeneca-CH-00665269A

PATIENT
  Sex: Female

DRUGS (1)
  1. STRENSIQ [Suspect]
     Active Substance: ASFOTASE ALFA
     Indication: Hypophosphatasia
     Dosage: UNK
     Route: 065

REACTIONS (6)
  - Injection site irritation [Not Recovered/Not Resolved]
  - Nasopharyngitis [Unknown]
  - Stress [Unknown]
  - Illness [Unknown]
  - Blood pressure increased [Unknown]
  - Product dose omission issue [Unknown]
